FAERS Safety Report 8462621-9 (Version None)
Quarter: 2012Q2

REPORT INFORMATION
  Report Type: 
  Country: None (occurrence: None)
  Receive Date: 20120625
  Receipt Date: 20120615
  Transmission Date: 20120825
  Serious: Yes (Death, Life-Threatening, Hospitalization, Other)
  Sender: FDA-Public Use
  Company Number: US-JNJFOC-20071007549

PATIENT
  Sex: Male
  Weight: 70 kg

DRUGS (17)
  1. COLCHICINE [Suspect]
     Indication: PRODUCT USED FOR UNKNOWN INDICATION
  2. FLECAINIDE ACETATE [Concomitant]
  3. ATENOLOL [Concomitant]
  4. LASIX [Concomitant]
  5. CYTOXAN [Suspect]
     Indication: RHEUMATOID VASCULITIS
     Route: 048
  6. THEO-DUR [Concomitant]
     Indication: CHRONIC OBSTRUCTIVE PULMONARY DISEASE
  7. REMICADE [Suspect]
     Indication: RHEUMATOID ARTHRITIS
     Route: 042
     Dates: end: 20070801
  8. CYTOXAN [Suspect]
     Route: 048
     Dates: end: 20070801
  9. ASPIRIN [Concomitant]
     Indication: PROPHYLAXIS
  10. HYTRIN [Concomitant]
  11. PREDNISONE [Suspect]
     Indication: VASCULITIS
  12. PREDNISONE [Suspect]
  13. REMICADE [Suspect]
     Indication: VASCULITIS
     Route: 042
     Dates: end: 20070801
  14. PLAQUENIL [Suspect]
     Indication: PRODUCT USED FOR UNKNOWN INDICATION
  15. PLAQUENIL [Suspect]
  16. RESTORIL [Concomitant]
     Indication: SLEEP DISORDER
  17. POTASSIUM ACETATE [Concomitant]

REACTIONS (12)
  - MULTI-ORGAN FAILURE [None]
  - DECREASED APPETITE [None]
  - NERVOUS SYSTEM DISORDER [None]
  - ASTHENIA [None]
  - CONFUSIONAL STATE [None]
  - RESPIRATORY FAILURE [None]
  - PROGRESSIVE MULTIFOCAL LEUKOENCEPHALOPATHY [None]
  - APHASIA [None]
  - DYSARTHRIA [None]
  - HEMIPARESIS [None]
  - URINARY INCONTINENCE [None]
  - CEREBROVASCULAR ACCIDENT [None]
